FAERS Safety Report 7928515-X (Version None)
Quarter: 2011Q4

REPORT INFORMATION
  Report Type: 
  Country: None (occurrence: None)
  Receive Date: 20111118
  Receipt Date: 20111108
  Transmission Date: 20120403
  Serious: Yes (Hospitalization, Other)
  Sender: FDA-Public Use
  Company Number: SE-ELI_LILLY_AND_COMPANY-SE201107004354

PATIENT
  Sex: Female

DRUGS (7)
  1. ZYPREXA [Suspect]
     Dosage: 7.5 MG, UNK
     Dates: start: 20110705
  2. LITHIUM CARBONATE [Concomitant]
  3. ZYPREXA [Suspect]
     Dosage: 5 MG, UNK
     Dates: start: 20100429
  4. ZYPREXA [Suspect]
     Dosage: 30 MG, UNK
  5. ZYPREXA [Suspect]
     Dosage: 10 MG, UNK
     Dates: start: 20110707
  6. ZYPREXA [Suspect]
     Dosage: 10 MG, UNK
  7. ZYPREXA [Suspect]
     Dosage: 2.5 MG, QD
     Dates: start: 20110101

REACTIONS (3)
  - ABORTION [None]
  - MANIA [None]
  - MATERNAL EXPOSURE DURING PREGNANCY [None]
